FAERS Safety Report 6639072-2 (Version None)
Quarter: 2010Q1

REPORT INFORMATION
  Report Type: 
  Country: None (occurrence: None)
  Receive Date: 20100312
  Receipt Date: 20100301
  Transmission Date: 20100710
  Serious: Yes (Hospitalization)
  Sender: FDA-Public Use
  Company Number: 1000012338

PATIENT
  Age: 30 Year
  Sex: Female

DRUGS (3)
  1. ESCITALOPRAM [Suspect]
     Dosage: 1 DOSAGE FORMS (1 DOSAGE FORMS, 1 IN 1 D), ORAL
     Route: 048
     Dates: start: 20100108
  2. TERALITHE (TABLETS) [Concomitant]
  3. LYSANXIA [Concomitant]

REACTIONS (4)
  - BLOOD INSULIN INCREASED [None]
  - CONVULSION [None]
  - HYPOGLYCAEMIA [None]
  - INSULIN C-PEPTIDE INCREASED [None]
